FAERS Safety Report 7012410-7 (Version None)
Quarter: 2010Q3

REPORT INFORMATION
  Report Type: 
  Country: None (occurrence: None)
  Receive Date: 20100924
  Receipt Date: 20100913
  Transmission Date: 20110219
  Serious: Yes (Hospitalization)
  Sender: FDA-Public Use
  Company Number: PHHY2010VE60714

PATIENT
  Sex: Male

DRUGS (3)
  1. EXELON [Suspect]
     Indication: DEMENTIA ALZHEIMER'S TYPE
     Dosage: UNK
     Dates: start: 20100603, end: 20100805
  2. SINEMET [Suspect]
     Indication: DEMENTIA ALZHEIMER'S TYPE
     Dosage: 25 /250 MG, ONCE A DAY
     Route: 048
     Dates: start: 20100603, end: 20100601
  3. LANSOPRAZOLE [Concomitant]
     Dosage: UNK
     Route: 048
     Dates: start: 20100603

REACTIONS (9)
  - ANXIETY [None]
  - BONE MARROW FAILURE [None]
  - DYSPNOEA [None]
  - NAUSEA [None]
  - PLATELET COUNT DECREASED [None]
  - PYREXIA [None]
  - RASH [None]
  - VOMITING [None]
  - WHITE BLOOD CELL COUNT DECREASED [None]
